FAERS Safety Report 20528364 (Version 1)
Quarter: 2022Q1

REPORT INFORMATION
  Report Type: Spontaneous
  Country: US (occurrence: None)
  Receive Date: 20220228
  Receipt Date: 20220228
  Transmission Date: 20220424
  Serious: Yes (Other)
  Sender: FDA-Public Use
  Company Number: None

PATIENT
  Age: 65 Year
  Sex: Female
  Weight: 74.25 kg

DRUGS (6)
  1. VALACYCLOVIR [Suspect]
     Active Substance: VALACYCLOVIR HYDROCHLORIDE
     Indication: Herpes simplex
     Dosage: OTHER QUANTITY : 1 TABLET(S);?FREQUENCY : AT BEDTIME;?
     Route: 048
     Dates: start: 20220222, end: 20220227
  2. CELECOXIB [Concomitant]
     Active Substance: CELECOXIB
  3. UNSPECIFIED INGREDIENT [Concomitant]
     Active Substance: UNSPECIFIED INGREDIENT
  4. ASPIRIN [Concomitant]
     Active Substance: ASPIRIN
  5. BACLOFEN [Concomitant]
     Active Substance: BACLOFEN
  6. VITAMINS [Concomitant]
     Active Substance: VITAMINS

REACTIONS (1)
  - Tachycardia [None]

NARRATIVE: CASE EVENT DATE: 20220226
